FAERS Safety Report 11686624 (Version 1)
Quarter: 2015Q4

REPORT INFORMATION
  Report Type: Spontaneous
  Country: US (occurrence: US)
  Receive Date: 20151030
  Receipt Date: 20151030
  Transmission Date: 20160304
  Serious: No
  Sender: FDA-Public Use
  Company Number: US-PFIZER INC-2015364683

PATIENT
  Age: 68 Year
  Sex: Female

DRUGS (3)
  1. CAFFEINE. [Suspect]
     Active Substance: CAFFEINE
     Dosage: UNK
  2. NICOTINE. [Suspect]
     Active Substance: NICOTINE
     Dosage: UNK
  3. CODEINE PHOSPHATE [Suspect]
     Active Substance: CODEINE PHOSPHATE
     Dosage: UNK

REACTIONS (1)
  - Drug hypersensitivity [Unknown]
